FAERS Safety Report 18134280 (Version 1)
Quarter: 2020Q3

REPORT INFORMATION
  Report Type: Spontaneous
  Country: US (occurrence: US)
  Receive Date: 20200807
  Receipt Date: 20200807
  Transmission Date: 20201103
  Serious: Yes (Hospitalization)
  Sender: FDA-Public Use
  Company Number: None

PATIENT
  Age: 86 Year
  Sex: Male

DRUGS (22)
  1. LISINOPRIL. [Concomitant]
     Active Substance: LISINOPRIL
  2. PRESERVISION AREDS [Concomitant]
     Active Substance: MINERALS\VITAMINS
  3. VITAMIN D3 [Concomitant]
     Active Substance: CHOLECALCIFEROL
  4. ANORO ELLIPT [Concomitant]
  5. COZAAR [Concomitant]
     Active Substance: LOSARTAN POTASSIUM
  6. WELCHOL [Concomitant]
     Active Substance: COLESEVELAM HYDROCHLORIDE
  7. WELLBUTRIN [Concomitant]
     Active Substance: BUPROPION HYDROCHLORIDE
  8. ZOLOFT [Concomitant]
     Active Substance: SERTRALINE HYDROCHLORIDE
  9. ABIRATERONE ACETATE 250MG TAB [Suspect]
     Active Substance: ABIRATERONE ACETATE
     Indication: PROSTATE CANCER
     Route: 048
     Dates: start: 20180127
  10. ASPIRIN. [Concomitant]
     Active Substance: ASPIRIN
  11. IRON [Concomitant]
     Active Substance: IRON
  12. OMEGA ? 3 EPA [Concomitant]
  13. PROTONIX [Concomitant]
     Active Substance: PANTOPRAZOLE SODIUM
  14. VITAMIN B12 [Concomitant]
     Active Substance: CYANOCOBALAMIN
  15. LIPITOR [Concomitant]
     Active Substance: ATORVASTATIN CALCIUM
  16. MULTI VITAMI+D3 [Concomitant]
  17. PREDNISONE. [Concomitant]
     Active Substance: PREDNISONE
  18. RANEXA [Concomitant]
     Active Substance: RANOLAZINE
  19. THIAMINE HCL [Concomitant]
     Active Substance: THIAMINE HYDROCHLORIDE
  20. COREG [Concomitant]
     Active Substance: CARVEDILOL
  21. LASIX [Concomitant]
     Active Substance: FUROSEMIDE
  22. NAMENDA XR [Concomitant]
     Active Substance: MEMANTINE HYDROCHLORIDE

REACTIONS (1)
  - Cerebrovascular accident [None]

NARRATIVE: CASE EVENT DATE: 20200713
